FAERS Safety Report 8248050-1 (Version None)
Quarter: 2012Q1

REPORT INFORMATION
  Report Type: 
  Country: None (occurrence: None)
  Receive Date: 20120330
  Receipt Date: 20120328
  Transmission Date: 20120608
  Serious: Yes (Other)
  Sender: FDA-Public Use
  Company Number: US-PFIZER INC-2012056961

PATIENT
  Sex: Female
  Weight: 47.619 kg

DRUGS (5)
  1. LOSARTAN [Concomitant]
     Indication: HYPERTENSION
     Dosage: UNK
  2. SIMVASTATIN [Concomitant]
     Dosage: UNK
  3. AMLODIPINE [Concomitant]
     Indication: HYPERTENSION
     Dosage: UNK
  4. CHANTIX [Suspect]
     Indication: SMOKING CESSATION THERAPY
     Dosage: 0.5 MG, 1X/DAY
     Route: 048
     Dates: start: 20120229, end: 20120101
  5. CHANTIX [Suspect]
     Dosage: UNK
     Dates: start: 20120101

REACTIONS (2)
  - DYSPNOEA [None]
  - DRUG INEFFECTIVE [None]
